FAERS Safety Report 5806323-3 (Version None)
Quarter: 2008Q3

REPORT INFORMATION
  Report Type: 
  Country: None (occurrence: None)
  Receive Date: 20080708
  Receipt Date: 20040928
  Transmission Date: 20090109
  Serious: Yes (Other)
  Sender: FDA-Public Use
  Company Number: US023673

PATIENT
  Age: 29 Year
  Sex: Female

DRUGS (3)
  1. GABITRIL [Suspect]
     Indication: PARTIAL SEIZURES
     Dosage: 38 MG DAILY ORAL
     Route: 048
  2. CARBAMAZEPINE [Concomitant]
  3. VALPROIC [Concomitant]

REACTIONS (3)
  - ABORTION SPONTANEOUS [None]
  - DRUG EXPOSURE DURING PREGNANCY [None]
  - ECTOPIC PREGNANCY [None]
